FAERS Safety Report 16191481 (Version 1)
Quarter: 2019Q2

REPORT INFORMATION
  Report Type: Spontaneous
  Country: DE (occurrence: DE)
  Receive Date: 20190412
  Receipt Date: 20190412
  Transmission Date: 20190711
  Serious: Yes (Other)
  Sender: FDA-Public Use
  Company Number: DE-TEVA-2019-DE-1035910

PATIENT
  Sex: Female
  Weight: 65 kg

DRUGS (1)
  1. CIPROFLOXACIN. [Suspect]
     Active Substance: CIPROFLOXACIN
     Dosage: 1-0-1
     Route: 048
     Dates: start: 20180919, end: 20180928

REACTIONS (10)
  - Pain in extremity [Not Recovered/Not Resolved]
  - Throat tightness [Not Recovered/Not Resolved]
  - Tachycardia [Recovering/Resolving]
  - Asthenia [Not Recovered/Not Resolved]
  - Depression [Not Recovered/Not Resolved]
  - Anxiety [Not Recovered/Not Resolved]
  - Dizziness [Recovering/Resolving]
  - Neck pain [Not Recovered/Not Resolved]
  - Disturbance in attention [Recovering/Resolving]
  - Myalgia [Recovering/Resolving]

NARRATIVE: CASE EVENT DATE: 20180930
